FAERS Safety Report 11437488 (Version 1)
Quarter: 2015Q3

REPORT INFORMATION
  Report Type: Spontaneous
  Country: US (occurrence: US)
  Receive Date: 20150821
  Receipt Date: 20150821
  Transmission Date: 20151125
  Serious: No
  Sender: FDA-Public Use
  Company Number: US-ELI_LILLY_AND_COMPANY-US200705001403

PATIENT
  Age: 55 Year
  Sex: Female

DRUGS (3)
  1. LUNESTA [Concomitant]
     Active Substance: ESZOPICLONE
  2. CYMBALTA [Suspect]
     Active Substance: DULOXETINE HYDROCHLORIDE
     Dosage: 60 MG, UNK
  3. TRAZODONE [Concomitant]
     Active Substance: TRAZODONE HYDROCHLORIDE

REACTIONS (1)
  - Paraesthesia [Unknown]
